FAERS Safety Report 11820144 (Version 2)
Quarter: 2015Q4

REPORT INFORMATION
  Report Type: Spontaneous
  Country: FR (occurrence: FR)
  Receive Date: 20151209
  Receipt Date: 20151209
  Transmission Date: 20160305
  Serious: Yes (Hospitalization)
  Sender: FDA-Public Use
  Company Number: FR-009507513-1512FRA004538

PATIENT
  Age: 18 Year
  Sex: Female

DRUGS (12)
  1. IFOSFAMIDE. [Suspect]
     Active Substance: IFOSFAMIDE
     Indication: OSTEOSARCOMA
     Dosage: 4880 MG, QD (3 G/M2)
     Route: 042
     Dates: start: 20151102, end: 20151104
  2. IFOSFAMIDE. [Suspect]
     Active Substance: IFOSFAMIDE
     Dosage: 4880 MG, QD (3 G/M2)
     Route: 042
     Dates: start: 20150831
  3. ETOPOSIDE. [Concomitant]
     Active Substance: ETOPOSIDE
     Dosage: 120 MG, QD
     Route: 042
     Dates: start: 20151102, end: 20151105
  4. EMEND [Suspect]
     Active Substance: APREPITANT
     Dosage: 1 DF, QD
     Route: 048
     Dates: start: 20151102, end: 20151102
  5. ONDANSETRON HYDROCHLORIDE. [Concomitant]
     Active Substance: ONDANSETRON HYDROCHLORIDE
     Dosage: 8 MG, Q12H
     Route: 042
  6. SOLU-MEDROL [Concomitant]
     Active Substance: METHYLPREDNISOLONE SODIUM SUCCINATE
     Dosage: 50 MG, Q12H
     Route: 042
  7. LARGACTIL [Concomitant]
     Active Substance: CHLORPROMAZINE
     Dosage: 27.5 MG, QD
     Route: 042
     Dates: start: 20151103
  8. EMEND [Suspect]
     Active Substance: APREPITANT
     Dosage: 1 DF, QD
     Route: 048
     Dates: start: 20151103, end: 20151104
  9. IFOSFAMIDE. [Suspect]
     Active Substance: IFOSFAMIDE
     Dosage: 4920 MG, QD (3 G/M2)
     Route: 042
     Dates: start: 20151007
  10. ATARAX [Concomitant]
     Active Substance: HYDROXYZINE\HYDROXYZINE HYDROCHLORIDE
     Dosage: 27.5 MG, QD
     Route: 042
  11. PLITICAN [Concomitant]
     Active Substance: ALIZAPRIDE HYDROCHLORIDE
     Dosage: 275 MG, QD
     Route: 042
     Dates: end: 20151103
  12. ETOPOSIDE. [Concomitant]
     Active Substance: ETOPOSIDE
     Dosage: 120 MG, QD, DAY 1-DAY 4
     Dates: start: 20150831

REACTIONS (1)
  - Encephalopathy [Recovered/Resolved]

NARRATIVE: CASE EVENT DATE: 20151104
